FAERS Safety Report 6200244-2 (Version None)
Quarter: 2009Q2

REPORT INFORMATION
  Report Type: 
  Country: None (occurrence: None)
  Receive Date: 20090522
  Receipt Date: 20090514
  Transmission Date: 20091009
  Serious: Yes (Other)
  Sender: FDA-Public Use
  Company Number: DE-JNJFOC-20090405600

PATIENT
  Sex: Female
  Weight: 75 kg

DRUGS (9)
  1. RISPERDAL CONSTA [Suspect]
     Route: 030
  2. RISPERDAL CONSTA [Suspect]
     Route: 030
  3. RISPERDAL CONSTA [Suspect]
     Indication: SCHIZOPHRENIA, PARANOID TYPE
     Route: 030
  4. RISPERIDONE [Suspect]
     Route: 048
  5. RISPERIDONE [Suspect]
     Route: 048
  6. RISPERIDONE [Suspect]
     Route: 048
  7. RISPERIDONE [Suspect]
     Route: 048
  8. RISPERIDONE [Suspect]
     Route: 048
  9. RISPERIDONE [Suspect]
     Indication: SCHIZOPHRENIA, PARANOID TYPE
     Route: 048

REACTIONS (5)
  - AGITATION [None]
  - DISTURBANCE IN ATTENTION [None]
  - ELECTROENCEPHALOGRAM ABNORMAL [None]
  - SENSORY DISTURBANCE [None]
  - VERTIGO [None]
